FAERS Safety Report 4365391-9 (Version None)
Quarter: 2004Q2

REPORT INFORMATION
  Report Type: 
  Country: None (occurrence: None)
  Receive Date: 20040525
  Receipt Date: 20040506
  Transmission Date: 20050107
  Serious: Yes (Hospitalization)
  Sender: FDA-Public Use
  Company Number: 236568

PATIENT
  Age: 72 Year
  Sex: Female
  Weight: 75 kg

DRUGS (1)
  1. VAGIFEM [Suspect]
     Indication: OESTROGEN DEFICIENCY
     Dosage: QD, VAGINAL
     Route: 067
     Dates: start: 20040408, end: 20040408

REACTIONS (2)
  - VAGINAL HAEMORRHAGE [None]
  - VAGINAL LACERATION [None]
